FAERS Safety Report 20218819 (Version 1)
Quarter: 2021Q4

REPORT INFORMATION
  Report Type: Spontaneous
  Country: US (occurrence: US)
  Receive Date: 20211222
  Receipt Date: 20211222
  Transmission Date: 20220304
  Serious: No
  Sender: FDA-Public Use
  Company Number: US-BioHaven Pharmaceuticals-2021BHV000773

PATIENT
  Age: 53 Year
  Sex: Female
  Weight: 59.020 kg

DRUGS (2)
  1. NURTEC ODT [Suspect]
     Active Substance: RIMEGEPANT SULFATE
     Indication: Migraine
     Dosage: TOOK THREE DOSES OF NURTEC AND THEN DISCONTINUED TAKING IT ON AN UNSPECIFIED DATE
     Route: 048
  2. estrogen estradiol cream [Concomitant]
     Indication: Product used for unknown indication
     Dosage: UNKNOWN HOW MUCH EACH DOSE IS, DAILY
     Route: 065

REACTIONS (3)
  - Abdominal pain upper [Recovered/Resolved]
  - Nausea [Recovered/Resolved]
  - Drug ineffective [Recovered/Resolved]

NARRATIVE: CASE EVENT DATE: 20210101
